FAERS Safety Report 8107309-9 (Version None)
Quarter: 2012Q1

REPORT INFORMATION
  Report Type: 
  Country: None (occurrence: None)
  Receive Date: 20120202
  Receipt Date: 20120126
  Transmission Date: 20120608
  Serious: Yes (Other)
  Sender: FDA-Public Use
  Company Number: FR-PFIZER INC-2012021205

PATIENT
  Age: 69 Year
  Sex: Female

DRUGS (3)
  1. VFEND [Suspect]
     Indication: PNEUMONIA
     Dosage: 200 MG, 1X/DAY
     Route: 048
     Dates: start: 20111213, end: 20120109
  2. COLCHICINE [Concomitant]
  3. SYMBICORT [Concomitant]

REACTIONS (2)
  - VISION BLURRED [None]
  - PHOTOPHOBIA [None]
